FAERS Safety Report 13590592 (Version 1)
Quarter: 2017Q2

REPORT INFORMATION
  Report Type: Spontaneous
  Country: US (occurrence: US)
  Receive Date: 20170529
  Receipt Date: 20170529
  Transmission Date: 20170830
  Serious: No
  Sender: FDA-Public Use
  Company Number: None

PATIENT
  Age: 16 Year
  Sex: Female
  Weight: 65.25 kg

DRUGS (1)
  1. GEODON [Suspect]
     Active Substance: ZIPRASIDONE HYDROCHLORIDE\ZIPRASIDONE MESYLATE
     Dosage: OTHER FREQUENCY:DAILY WITH DINNER;?
     Route: 048
     Dates: start: 20170529

REACTIONS (1)
  - Tremor [None]

NARRATIVE: CASE EVENT DATE: 20170529
